FAERS Safety Report 10167643 (Version 1)
Quarter: 2014Q2

REPORT INFORMATION
  Report Type: Report from Study
  Country: CA (occurrence: CA)
  Receive Date: 20140512
  Receipt Date: 20140512
  Transmission Date: 20141212
  Serious: Yes (Other)
  Sender: FDA-Public Use
  Company Number: CA-BRISTOL-MYERS SQUIBB COMPANY-20717443

PATIENT
  Age: 45 Year
  Sex: Female

DRUGS (6)
  1. ORENCIA [Suspect]
     Indication: RHEUMATOID ARTHRITIS
     Dosage: 1DF:1000
     Dates: start: 20111103
  2. METHOTREXATE [Concomitant]
  3. CELEBREX [Concomitant]
  4. PAXIL [Concomitant]
  5. TYLENOL WITH CODEINE [Concomitant]
  6. PERCOCET [Concomitant]

REACTIONS (2)
  - Arthropathy [Unknown]
  - Blood pressure increased [Unknown]
